FAERS Safety Report 21061182 (Version 1)
Quarter: 2022Q3

REPORT INFORMATION
  Report Type: Spontaneous
  Country: US (occurrence: US)
  Receive Date: 20220709
  Receipt Date: 20220709
  Transmission Date: 20221027
  Serious: No
  Sender: FDA-Public Use
  Company Number: US-SANOFI-01178710

PATIENT
  Age: 81 Year
  Sex: Female

DRUGS (1)
  1. LANTUS [Suspect]
     Active Substance: INSULIN GLARGINE
     Indication: Type 1 diabetes mellitus
     Dosage: DRUG TREATMENT DURATION:25 YEARS AGO PATIENT TAKES AN AVERAGE OF LANTUS 28 UNITS BID, HOWEVER IT RAN

REACTIONS (2)
  - Rhinorrhoea [Unknown]
  - Inappropriate schedule of product administration [Unknown]
